FAERS Safety Report 7493358-0 (Version None)
Quarter: 2011Q2

REPORT INFORMATION
  Report Type: 
  Country: None (occurrence: None)
  Receive Date: 20110520
  Receipt Date: 20110516
  Transmission Date: 20111010
  Serious: Yes (Hospitalization, Other)
  Sender: FDA-Public Use
  Company Number: US-PFIZER INC-2011044384

PATIENT
  Sex: Female

DRUGS (8)
  1. SOMA [Concomitant]
     Indication: BACK PAIN
     Dosage: UNK,
     Dates: start: 19910101
  2. ALBUTEROL INHALER [Concomitant]
     Indication: CHRONIC OBSTRUCTIVE PULMONARY DISEASE
     Dosage: UNK,
     Dates: start: 20070101
  3. ATENOLOL [Concomitant]
     Indication: CARDIAC DISORDER
     Dosage: UNK,
  4. CHANTIX [Suspect]
     Indication: SMOKING CESSATION THERAPY
     Dosage: UNK,
     Dates: start: 20071001
  5. PROVENTIL GENTLEHALER [Concomitant]
     Indication: CHRONIC OBSTRUCTIVE PULMONARY DISEASE
     Dosage: UNK,
     Dates: start: 20070101
  6. BENAZEPRIL [Concomitant]
     Indication: HYPERTENSION
     Dosage: UNK,
     Dates: start: 20070101
  7. PERCOCET [Concomitant]
     Indication: MIGRAINE
     Dosage: UNK,
     Dates: start: 20070101, end: 20100601
  8. PROMETHAZINE HYDROCHLORIDE [Concomitant]
     Indication: NAUSEA
     Dosage: UNK,
     Dates: start: 19910101

REACTIONS (7)
  - NIGHTMARE [None]
  - SUICIDE ATTEMPT [None]
  - POST-TRAUMATIC STRESS DISORDER [None]
  - FATIGUE [None]
  - MAJOR DEPRESSION [None]
  - AGGRESSION [None]
  - ANXIETY [None]
